FAERS Safety Report 5373876-1 (Version None)
Quarter: 2007Q2

REPORT INFORMATION
  Report Type: 
  Country: None (occurrence: None)
  Receive Date: 20070628
  Receipt Date: 20070618
  Transmission Date: 20071010
  Serious: Yes (Other)
  Sender: FDA-Public Use
  Company Number: US-PFIZER INC-2007050178

PATIENT
  Sex: Female

DRUGS (3)
  1. CADUET [Suspect]
  2. ANXIOLYTICS [Concomitant]
  3. ANTIDEPRESSANTS [Concomitant]

REACTIONS (2)
  - HEADACHE [None]
  - SURGERY [None]
